FAERS Safety Report 13421647 (Version 2)
Quarter: 2017Q2

REPORT INFORMATION
  Report Type: Spontaneous
  Country: CA (occurrence: CA)
  Receive Date: 20170410
  Receipt Date: 20170410
  Transmission Date: 20170830
  Serious: Yes (Other)
  Sender: FDA-Public Use
  Company Number: CA-CIPLA LTD.-2017CA04994

PATIENT

DRUGS (4)
  1. SERTRALINE [Suspect]
     Active Substance: SERTRALINE HYDROCHLORIDE
     Dosage: UNK
     Route: 065
  2. METHYLPHENIDATE. [Suspect]
     Active Substance: METHYLPHENIDATE
     Dosage: UNK
     Route: 065
  3. AMITRIPTYLINE [Suspect]
     Active Substance: AMITRIPTYLINE
     Dosage: UNK
     Route: 065
  4. ACETAMINOPHEN/CAFFEINE/CODEINE [Suspect]
     Active Substance: ACETAMINOPHEN\CAFFEINE\CODEINE
     Dosage: UNK, (300MG/15MG/8MG), 200 TABLETS PER WEEK, VARYING FROM 14 TO 80 TABLETS PER DAY
     Route: 065

REACTIONS (4)
  - Deafness [Unknown]
  - Tinnitus [Unknown]
  - Drug use disorder [Unknown]
  - Balance disorder [Unknown]
